FAERS Safety Report 23365606 (Version 2)
Quarter: 2024Q1

REPORT INFORMATION
  Report Type: Report from Study
  Country: RU (occurrence: RU)
  Receive Date: 20240104
  Receipt Date: 20240120
  Transmission Date: 20240409
  Serious: Yes (Other)
  Sender: FDA-Public Use
  Company Number: RU-002147023-NVSC2023RU262225

PATIENT
  Age: 82 Year
  Sex: Female

DRUGS (7)
  1. INCLISIRAN [Suspect]
     Active Substance: INCLISIRAN
     Indication: Type IIa hyperlipidaemia
     Dosage: 1 DOSAGE FORM (284 MG/1.5 ML) (RECOMMENDED SINGLE DOSE IS 284 MG/1.5 ML; NEXT DOSE IN THREE MONTHS)
     Route: 058
     Dates: start: 20230310, end: 20230610
  2. ISOSORBIDE MONONITRATE [Concomitant]
     Active Substance: ISOSORBIDE MONONITRATE
     Indication: Product used for unknown indication
     Dosage: 400 MG, BID (MORNING AND EVENING)
     Route: 065
  3. OMACOR [Concomitant]
     Active Substance: OMEGA-3-ACID ETHYL ESTERS
     Indication: Product used for unknown indication
     Dosage: UNK, BID (2 TIMES A DAY IN THE MORNING AND AFTERNOON)
     Route: 065
  4. CORAXAN [Concomitant]
     Indication: Product used for unknown indication
     Dosage: 7.5 MG, BID
     Route: 065
  5. AKATINOL MEMANTINE [Concomitant]
     Indication: Product used for unknown indication
     Dosage: 15 MG, QD (1 TIME PER DAY)
     Route: 065
  6. MOXONIDINE [Concomitant]
     Active Substance: MOXONIDINE
     Indication: Product used for unknown indication
     Dosage: 0.2 MG, QD
     Route: 065
  7. DIETARY SUPPLEMENT\HERBALS [Concomitant]
     Active Substance: DIETARY SUPPLEMENT\HERBALS
     Indication: Product used for unknown indication
     Dosage: UNK
     Route: 065

REACTIONS (6)
  - Bronchospasm [Recovered/Resolved]
  - Bronchospasm [Recovered/Resolved]
  - Myalgia [Recovered/Resolved]
  - Back pain [Unknown]
  - Pain [Unknown]
  - Pain in extremity [Unknown]

NARRATIVE: CASE EVENT DATE: 20230610
